FAERS Safety Report 8382369-9 (Version None)
Quarter: 2012Q2

REPORT INFORMATION
  Report Type: 
  Country: None (occurrence: None)
  Receive Date: 20120524
  Receipt Date: 20120516
  Transmission Date: 20120825
  Serious: Yes (Hospitalization)
  Sender: FDA-Public Use
  Company Number: CA-UCBSA-057646

PATIENT
  Age: 61 Year
  Sex: Female
  Weight: 59.09 kg

DRUGS (9)
  1. CIMZIA [Suspect]
     Indication: RHEUMATOID ARTHRITIS
     Route: 058
     Dates: start: 20110822, end: 20120504
  2. FOLIC ACID [Concomitant]
     Indication: RHEUMATOID ARTHRITIS
     Route: 048
     Dates: start: 20090101, end: 20120504
  3. METHOTREXATE [Concomitant]
     Indication: RHEUMATOID ARTHRITIS
     Route: 058
     Dates: start: 20090101, end: 20120504
  4. LEVOTHYROXINE SODIUM [Concomitant]
     Indication: HYPOTHYROIDISM
     Route: 048
  5. AVAPRO [Concomitant]
     Indication: HYPERTENSION
     Route: 048
     Dates: end: 20120504
  6. LEVOTHYROXINE SODIUM [Concomitant]
     Route: 048
  7. CIMZIA [Suspect]
     Route: 058
     Dates: start: 20110711, end: 20110808
  8. AMITRIPTILLINE [Concomitant]
     Indication: PAIN
     Route: 048
     Dates: start: 20110101
  9. VARENICLINE TARTRATE [Concomitant]
     Dosage: SINCE ONE MONTH
     Dates: start: 20120101

REACTIONS (2)
  - SYNCOPE [None]
  - HISTIOCYTOSIS [None]
